FAERS Safety Report 8131722-7 (Version None)
Quarter: 2012Q1

REPORT INFORMATION
  Report Type: 
  Country: None (occurrence: None)
  Receive Date: 20120213
  Receipt Date: 20120207
  Transmission Date: 20120608
  Serious: Yes (Life-Threatening)
  Sender: FDA-Public Use
  Company Number: GB-ASTELLAS-2012EU000941

PATIENT
  Age: 23 Year
  Sex: Female
  Weight: 40 kg

DRUGS (8)
  1. PROGRAF [Suspect]
     Dosage: 80 MG, UNKNOWN/D
     Route: 065
  2. MYCOPHENOLATE MOFETIL [Concomitant]
     Dosage: UNK
     Route: 065
  3. LEVOTHYROXINE SODIUM [Concomitant]
     Dosage: UNK
     Route: 065
  4. ASPIRIN [Concomitant]
     Dosage: UNK
     Route: 065
  5. PROGRAF [Suspect]
     Dosage: UNK MG, UNKNOWN/D
     Route: 065
  6. LANSOPRAZOLE [Concomitant]
     Dosage: UNK
     Route: 065
  7. AMLODIPINE [Concomitant]
     Dosage: UNK
     Route: 065
  8. PREDNISOLONE [Concomitant]
     Dosage: 5 MG, UNKNOWN/D
     Route: 065

REACTIONS (1)
  - OVERDOSE [None]
